FAERS Safety Report 25086095 (Version 4)
Quarter: 2025Q4

REPORT INFORMATION
  Report Type: Report from Study
  Country: EU (occurrence: EU)
  Receive Date: 20250317
  Receipt Date: 20251106
  Transmission Date: 20260117
  Serious: Yes (Hospitalization, Other)
  Sender: TAKEDA
  Company Number: EU-TAKEDA-2024TUS057187

PATIENT
  Sex: Male

DRUGS (2)
  1. FRUQUINTINIB [Suspect]
     Active Substance: FRUQUINTINIB
     Indication: Colorectal cancer metastatic
     Dosage: 5 MILLIGRAM
  2. FRUQUINTINIB [Suspect]
     Active Substance: FRUQUINTINIB
     Dosage: 4 MILLIGRAM

REACTIONS (7)
  - Colorectal cancer metastatic [Unknown]
  - Dyspnoea [Unknown]
  - Asthenia [Unknown]
  - Mucosal inflammation [Recovered/Resolved]
  - Dysphonia [Recovered/Resolved]
  - Arthralgia [Recovered/Resolved]
  - Toxicity to various agents [Recovered/Resolved]
